FAERS Safety Report 23633492 (Version 1)
Quarter: 2024Q1

REPORT INFORMATION
  Report Type: Spontaneous
  Country: US (occurrence: US)
  Receive Date: 20240314
  Receipt Date: 20240314
  Transmission Date: 20240410
  Serious: No
  Sender: FDA-Public Use
  Company Number: US-TEVA-VS-3138772

PATIENT
  Age: 34 Year
  Sex: Male
  Weight: 113.4 kg

DRUGS (1)
  1. AMPHETAMINE [Suspect]
     Active Substance: AMPHETAMINE
     Indication: Attention deficit hyperactivity disorder
     Dosage: AMPHETAMINE SALTS
     Route: 048
     Dates: start: 2003

REACTIONS (1)
  - Fatigue [Unknown]
